FAERS Safety Report 4822793-1 (Version None)
Quarter: 2005Q4

REPORT INFORMATION
  Report Type: 
  Country: None (occurrence: None)
  Receive Date: 20051107
  Receipt Date: 20051107
  Transmission Date: 20060501
  Serious: No
  Sender: FDA-Public Use
  Company Number: None

PATIENT
  Age: 61 Year
  Sex: Female
  Weight: 68.0396 kg

DRUGS (4)
  1. ZOCOR [Suspect]
     Indication: HYPERLIPIDAEMIA
     Dosage: 20 MG HS
     Dates: start: 20050901
  2. LIPITOR [Suspect]
     Indication: ARTERIOSCLEROSIS CORONARY ARTERY
     Dosage: 40 MG HS
     Dates: start: 20030911
  3. ADVICOR [Concomitant]
  4. TRICOR [Concomitant]

REACTIONS (1)
  - MYALGIA [None]
